FAERS Safety Report 4750701-0 (Version None)
Quarter: 2005Q3

REPORT INFORMATION
  Report Type: 
  Country: None (occurrence: None)
  Receive Date: 20050823
  Receipt Date: 20040705
  Transmission Date: 20060218
  Serious: Yes (Death, Hospitalization)
  Sender: FDA-Public Use
  Company Number: 200412591FR

PATIENT
  Age: 77 Year
  Sex: Male

DRUGS (6)
  1. FLAGYL [Suspect]
     Indication: ESCHAR
     Route: 042
     Dates: start: 20040524, end: 20040613
  2. FLAGYL [Suspect]
     Indication: OSTEITIS
     Route: 042
     Dates: start: 20040524, end: 20040613
  3. ROCEPHIN [Suspect]
     Indication: ESCHAR
     Route: 042
     Dates: start: 20040524, end: 20040613
  4. ROCEPHIN [Suspect]
     Indication: OSTEITIS
     Route: 042
     Dates: start: 20040524, end: 20040613
  5. CIFLOX [Concomitant]
     Route: 048
     Dates: start: 20040528, end: 20040609
  6. AMIKLIN [Concomitant]
     Dates: start: 20040524, end: 20040528

REACTIONS (4)
  - AMPUTATION [None]
  - LEUKOCYTOCLASTIC VASCULITIS [None]
  - OSTEITIS [None]
  - VASCULAR PURPURA [None]
